FAERS Safety Report 20057147 (Version 2)
Quarter: 2021Q4

REPORT INFORMATION
  Report Type: Spontaneous
  Country: DK (occurrence: DK)
  Receive Date: 20211111
  Receipt Date: 20211116
  Transmission Date: 20220303
  Serious: Yes (Life-Threatening, Hospitalization, Other)
  Sender: FDA-Public Use
  Company Number: None

PATIENT
  Age: 66 Year
  Sex: Female
  Weight: 86 kg

DRUGS (8)
  1. METFORMIN HYDROCHLORIDE [Suspect]
     Active Substance: METFORMIN HYDROCHLORIDE
     Indication: Type 2 diabetes mellitus
     Dosage: STRENGTH: 1000 MG
     Route: 048
     Dates: start: 20190726, end: 20210812
  2. LINAGLIPTIN [Suspect]
     Active Substance: LINAGLIPTIN
     Indication: Type 2 diabetes mellitus
     Dosage: 5 MILLIGRAM, QD (STRENGTH: 5 MG)
     Route: 048
     Dates: start: 20210326, end: 20210812
  3. JARDIANCE [Suspect]
     Active Substance: EMPAGLIFLOZIN
     Indication: Type 2 diabetes mellitus
     Dosage: 25 MILLIGRAM, QD (STRENGTH: 25 MG)
     Route: 048
     Dates: start: 20200908, end: 20210812
  4. SPIRONOLACTONE [Concomitant]
     Active Substance: SPIRONOLACTONE
     Indication: Cardiac failure
     Dosage: UNK
     Dates: start: 20190611
  5. FURIX [Concomitant]
     Indication: Diuretic therapy
     Dosage: UNK
     Dates: start: 20190613
  6. ELIQUIS [Concomitant]
     Active Substance: APIXABAN
     Indication: Thrombosis prophylaxis
     Dosage: UNK
     Dates: start: 20190610
  7. METOPROLOL SUCCINATE [Concomitant]
     Active Substance: METOPROLOL SUCCINATE
     Indication: Cardiac disorder
     Dosage: UNK
     Dates: start: 20190726
  8. RAMIPRIL [Concomitant]
     Active Substance: RAMIPRIL
     Indication: Cardiac disorder
     Dosage: UNK
     Dates: start: 20190726

REACTIONS (8)
  - Cardiac arrest [Recovered/Resolved]
  - Faeces discoloured [Recovered/Resolved]
  - Ketoacidosis [Recovered/Resolved]
  - Dyspnoea [Recovered/Resolved]
  - Acute kidney injury [Recovered/Resolved]
  - Vomiting [Recovered/Resolved]
  - Lactic acidosis [Recovered/Resolved]
  - Diarrhoea [Recovered/Resolved]

NARRATIVE: CASE EVENT DATE: 20210809
